FAERS Safety Report 5905316 (Version 2)
Quarter: 2013Q1

REPORT INFORMATION
  Report Type: Spontaneous
  Country: PL (occurrence: None)
  Receive Date: 20051011
  Receipt Date: 20121026
  Transmission Date: 20140127
  Serious: Yes (Other)
  Sender: FDA-Public Use
  Company Number: THQ2005A00866

PATIENT
  Age: 63 Year
  Sex: Female

DRUGS (2)
  1. LANSOPRAZOLE (LANSOPRAZOLE) [Suspect]
     Indication: GASTRIC ULCER
  2. OESTROGEN (ESTROGEN NOS) [Concomitant]

REACTIONS (1)
  - Cutaneous lupus erythematosus [None]
